FAERS Safety Report 7110221-5 (Version None)
Quarter: 2010Q4

REPORT INFORMATION
  Report Type: 
  Country: None (occurrence: None)
  Receive Date: 20101118
  Receipt Date: 20101108
  Transmission Date: 20110411
  Serious: Yes (Other)
  Sender: FDA-Public Use
  Company Number: US-BAXTER-2010BH028083

PATIENT
  Age: 53 Year
  Sex: Female

DRUGS (32)
  1. GAMMAGARD LIQUID [Suspect]
     Indication: IMMUNODEFICIENCY COMMON VARIABLE
     Route: 065
  2. GAMMAGARD LIQUID [Suspect]
     Indication: PRIMARY IMMUNODEFICIENCY SYNDROME
     Route: 065
  3. GAMMAGARD LIQUID [Suspect]
     Indication: HYPOGAMMAGLOBULINAEMIA
     Route: 065
  4. PREDNISONE [Concomitant]
  5. ORAL ANTIDIABETICS [Concomitant]
  6. VITAMIN D [Concomitant]
  7. VITAMIN B-12 [Concomitant]
  8. ZAROXOLYN [Concomitant]
  9. ATIVAN [Concomitant]
  10. PERCOCET [Concomitant]
  11. DEPO-PROVERA [Concomitant]
     Route: 030
  12. VISTARIL [Concomitant]
  13. ASMANEX TWISTHALER [Concomitant]
     Route: 055
  14. SINGULAIR [Concomitant]
  15. PHENERGAN [Concomitant]
  16. AMBIEN [Concomitant]
  17. LASIX [Concomitant]
  18. PROVENTIL [Concomitant]
     Route: 055
  19. ALLEGRA-D /01367401/ [Concomitant]
  20. SUCRALFATE [Concomitant]
  21. SEREVENT [Concomitant]
  22. TIOTROPIUM BROMIDE [Concomitant]
  23. XOLAIR [Concomitant]
  24. LORTAB [Concomitant]
  25. FLOVENT [Concomitant]
  26. MULTI-VITAMINS [Concomitant]
  27. FLOMAG [Concomitant]
  28. PRILOSEC [Concomitant]
  29. DETROL [Concomitant]
  30. POTASSIUM CHLORIDE [Concomitant]
  31. ARTHROTEC [Concomitant]
  32. CHONDROITIN W/GLUCOSAMINE [Concomitant]

REACTIONS (1)
  - ANAPHYLACTIC REACTION [None]
